FAERS Safety Report 6418676-6 (Version None)
Quarter: 2009Q4

REPORT INFORMATION
  Report Type: 
  Country: None (occurrence: None)
  Receive Date: 20091028
  Receipt Date: 20091016
  Transmission Date: 20100525
  Serious: Yes (Other)
  Sender: FDA-Public Use
  Company Number: GB-JNJCH-2009025212

PATIENT
  Sex: Male

DRUGS (3)
  1. CALPOL SIX PLUS SUGAR FREE/COLOR FREE [Suspect]
     Indication: DRUG USE FOR UNKNOWN INDICATION
     Dosage: TEXT:2 X 5 ML
     Route: 048
  2. LANTUS [Suspect]
     Indication: DIABETES MELLITUS
     Dosage: TEXT:UNSPECIFIED
     Route: 050
  3. HUMALOG [Suspect]
     Indication: DIABETES MELLITUS
     Dosage: TEXT:UNSPECIFIED
     Route: 050

REACTIONS (3)
  - ABDOMINAL PAIN UPPER [None]
  - BACK PAIN [None]
  - DIABETES MELLITUS [None]
